FAERS Safety Report 8246636-1 (Version None)
Quarter: 2012Q1

REPORT INFORMATION
  Report Type: 
  Country: None (occurrence: None)
  Receive Date: 20120330
  Receipt Date: 20120326
  Transmission Date: 20120608
  Serious: Yes (Other)
  Sender: FDA-Public Use
  Company Number: US-PFIZER INC-2012077872

PATIENT
  Sex: Male
  Weight: 71.655 kg

DRUGS (4)
  1. SUTENT [Suspect]
     Dosage: 50 MG, DAILY
     Route: 048
     Dates: start: 20120301
  2. SUTENT [Suspect]
     Indication: THYMOMA MALIGNANT RECURRENT
     Dosage: 50 MG, DAILY
     Route: 048
     Dates: start: 20120201, end: 20120305
  3. OMEPRAZOLE [Concomitant]
     Indication: GASTROOESOPHAGEAL REFLUX DISEASE
     Dosage: 20 MG, DAILY
  4. MESTINON [Concomitant]
     Indication: MYASTHENIA GRAVIS
     Dosage: 180 MG, DAILY

REACTIONS (11)
  - OROPHARYNGEAL BLISTERING [None]
  - DIARRHOEA [None]
  - LIVER FUNCTION TEST ABNORMAL [None]
  - ARTHRALGIA [None]
  - WHITE BLOOD CELL COUNT DECREASED [None]
  - NAUSEA [None]
  - RED BLOOD CELL COUNT DECREASED [None]
  - INFLUENZA LIKE ILLNESS [None]
  - HEPATIC ENZYME INCREASED [None]
  - HAEMATOCRIT DECREASED [None]
  - HYPERAESTHESIA [None]
